FAERS Safety Report 25291064 (Version 2)
Quarter: 2025Q2

REPORT INFORMATION
  Report Type: Report from Study
  Country: CA (occurrence: CA)
  Receive Date: 20250510
  Receipt Date: 20250529
  Transmission Date: 20250717
  Serious: Yes (Death, Hospitalization)
  Sender: BOEHRINGER INGELHEIM
  Company Number: CA-BoehringerIngelheim-2022-BI-190241

PATIENT
  Age: 80 Year
  Sex: Male

DRUGS (2)
  1. OFEV [Suspect]
     Active Substance: NINTEDANIB
     Indication: Idiopathic pulmonary fibrosis
     Dates: start: 20220815
  2. OFEV [Suspect]
     Active Substance: NINTEDANIB
     Dates: start: 20221222, end: 2025

REACTIONS (21)
  - Death [Fatal]
  - Hypotension [Recovered/Resolved]
  - Fall [Recovered/Resolved]
  - Weight decreased [Recovered/Resolved]
  - Rib fracture [Recovered/Resolved]
  - Pneumonia [Recovered/Resolved]
  - Diarrhoea [Recovered/Resolved with Sequelae]
  - Dizziness [Recovering/Resolving]
  - Fatigue [Not Recovered/Not Resolved]
  - Dizziness [Not Recovered/Not Resolved]
  - Headache [Not Recovered/Not Resolved]
  - Abdominal discomfort [Unknown]
  - Circumcision [Recovered/Resolved]
  - Hypotension [Not Recovered/Not Resolved]
  - Drug intolerance [Unknown]
  - Nausea [Unknown]
  - Decreased appetite [Not Recovered/Not Resolved]
  - Diarrhoea [Not Recovered/Not Resolved]
  - Visual impairment [Unknown]
  - Confusional state [Unknown]
  - Epistaxis [Unknown]

NARRATIVE: CASE EVENT DATE: 20220101
